FAERS Safety Report 9146990 (Version 2)
Quarter: 2013Q2

REPORT INFORMATION
  Report Type: Spontaneous
  Country: FR (occurrence: FR)
  Receive Date: 20130307
  Receipt Date: 20130409
  Transmission Date: 20140414
  Serious: Yes (Death, Life-Threatening, Hospitalization, Other)
  Sender: FDA-Public Use
  Company Number: FR-B.I. PHARMACEUTICALS,INC./RIDGEFIELD-2013-FF-00632FF

PATIENT
  Age: 74 Year
  Sex: Male
  Weight: 78 kg

DRUGS (9)
  1. PRADAXA [Suspect]
     Indication: ATRIAL FIBRILLATION
     Dosage: 220 MG
     Route: 048
     Dates: start: 20120914, end: 20130208
  2. AMAREL [Concomitant]
     Dosage: 2 MG
     Route: 048
  3. METFORMINE LP [Concomitant]
     Dosage: 2000 MG
     Route: 048
  4. LANTUS [Concomitant]
     Dosage: 8 UNITS DAILY
  5. INEGY [Concomitant]
     Dosage: 10MG/20MG; 1 TABLET DAILY
     Route: 048
  6. COVERSYL [Concomitant]
     Dosage: 10 MG
     Route: 048
  7. CARDENSIEL [Concomitant]
     Dosage: 1.25 MG
     Route: 048
  8. FUROSEMIDE [Concomitant]
     Dosage: 80 MG
     Route: 048
  9. KARDEGIC [Concomitant]
     Dosage: 75 MG
     Route: 048

REACTIONS (5)
  - Anaemia [Fatal]
  - Cardiogenic shock [Fatal]
  - Haemorrhage [Fatal]
  - Cardiac disorder [Unknown]
  - Disseminated intravascular coagulation [Unknown]
